FAERS Safety Report 20745628 (Version 3)
Quarter: 2022Q2

REPORT INFORMATION
  Report Type: Spontaneous
  Country: US (occurrence: US)
  Receive Date: 20220425
  Receipt Date: 20220606
  Transmission Date: 20220720
  Serious: Yes (Hospitalization)
  Sender: FDA-Public Use
  Company Number: US-BIOCODEX2-2022000273

PATIENT

DRUGS (13)
  1. DIACOMIT [Suspect]
     Active Substance: STIRIPENTOL
     Indication: Severe myoclonic epilepsy of infancy
     Dosage: 250MG, 2 CAPSULES EVERY MORNING AND 3 CAPSULES EVERY EVENING.
     Dates: start: 20210723, end: 20220406
  2. DIACOMIT [Suspect]
     Active Substance: STIRIPENTOL
     Indication: Tuberous sclerosis complex
     Dosage: 5 CAPSULES BY MOUTH DAILY
     Dates: end: 20220406
  3. DIACOMIT [Suspect]
     Active Substance: STIRIPENTOL
     Dosage: 3 CAPSULES OF 250MG IN THE MORNING AND 3 CAPSULES OF250MG IN THE EVENING
     Dates: start: 20220407
  4. DIACOMIT [Suspect]
     Active Substance: STIRIPENTOL
     Dosage: 750 MG TWICE A DAY
  5. CLOBAZAM [Concomitant]
     Active Substance: CLOBAZAM
     Indication: Severe myoclonic epilepsy of infancy
     Dosage: UNK
     Route: 065
  6. AFINITOR [Concomitant]
     Active Substance: EVEROLIMUS
     Indication: Product used for unknown indication
     Dosage: UNK
     Route: 065
  7. CLONIDINE HYDROCHLORIDE [Concomitant]
     Active Substance: CLONIDINE HYDROCHLORIDE
     Indication: Product used for unknown indication
     Dosage: UNK
     Route: 065
  8. DIASTAT [Concomitant]
     Active Substance: DIAZEPAM
     Indication: Product used for unknown indication
     Dosage: UNK
     Route: 065
  9. EPIDIOLEX [Concomitant]
     Active Substance: CANNABIDIOL
     Indication: Product used for unknown indication
     Dosage: UNK
     Route: 065
  10. LISINOPRIL [Concomitant]
     Active Substance: LISINOPRIL
     Indication: Product used for unknown indication
     Dosage: UNK
     Route: 065
  11. MIRTAZAPINE [Concomitant]
     Active Substance: MIRTAZAPINE
     Indication: Product used for unknown indication
     Dosage: UNK
     Route: 065
  12. NALTREXONE HYDROCHLORIDE [Concomitant]
     Active Substance: NALTREXONE HYDROCHLORIDE
     Indication: Product used for unknown indication
     Dosage: UNK
     Route: 065
  13. TOPAMAX [Concomitant]
     Active Substance: TOPIRAMATE
     Indication: Product used for unknown indication
     Dosage: UNK
     Route: 065

REACTIONS (3)
  - Urinary tract infection [Unknown]
  - Product dose omission issue [Unknown]
  - Product use in unapproved indication [Unknown]
